FAERS Safety Report 23123395 (Version 2)
Quarter: 2023Q4

REPORT INFORMATION
  Report Type: Report from Study
  Country: GB (occurrence: GB)
  Receive Date: 20231030
  Receipt Date: 20231108
  Transmission Date: 20240109
  Serious: Yes (Other)
  Sender: FDA-Public Use
  Company Number: GB-BoehringerIngelheim-2023-BI-232392

PATIENT
  Age: 95 Year
  Sex: Female
  Weight: 73 kg

DRUGS (5)
  1. ALTEPLASE [Suspect]
     Active Substance: ALTEPLASE
     Indication: Ischaemic stroke
     Dosage: MOST RECENT DOSE RECEIVED ON 13/APR/2023
     Route: 042
     Dates: start: 20230413, end: 20230413
  2. DIGOXIN [Concomitant]
     Active Substance: DIGOXIN
  3. APIXABAN [Concomitant]
     Active Substance: APIXABAN
     Indication: Product used for unknown indication
     Route: 048
     Dates: start: 20230415
  4. FUROSEMIDE [Concomitant]
     Active Substance: FUROSEMIDE
     Indication: Product used for unknown indication
     Route: 048
     Dates: start: 20230417
  5. QUETIAPINE [Concomitant]
     Active Substance: QUETIAPINE
     Indication: Product used for unknown indication
     Route: 048
     Dates: start: 20230418

REACTIONS (2)
  - Delirium [Not Recovered/Not Resolved]
  - Delirium [Recovered/Resolved with Sequelae]

NARRATIVE: CASE EVENT DATE: 20230414
